FAERS Safety Report 8167997-8 (Version None)
Quarter: 2012Q1

REPORT INFORMATION
  Report Type: 
  Country: None (occurrence: None)
  Receive Date: 20120227
  Receipt Date: 20120222
  Transmission Date: 20120608
  Serious: Yes (Hospitalization)
  Sender: FDA-Public Use
  Company Number: JP-GLAXOSMITHKLINE-B0784176A

PATIENT
  Age: 6 Year
  Sex: Female

DRUGS (1)
  1. HYCAMTIN [Suspect]
     Indication: BRAIN NEOPLASM
     Dosage: .9MGM2 PER DAY
     Route: 042
     Dates: start: 20120213, end: 20120214

REACTIONS (1)
  - INTERSTITIAL LUNG DISEASE [None]
